FAERS Safety Report 12442987 (Version 1)
Quarter: 2016Q2

REPORT INFORMATION
  Report Type: Spontaneous
  Country: US (occurrence: None)
  Receive Date: 20160606
  Receipt Date: 20160606
  Transmission Date: 20160815
  Serious: Yes (Disabling)
  Sender: FDA-Public Use
  Company Number: None

PATIENT
  Age: 76 Year
  Sex: Male
  Weight: 81.65 kg

DRUGS (7)
  1. ZOCOR KLOR-CON [Concomitant]
  2. DEPAKOTE [Concomitant]
     Active Substance: DIVALPROEX SODIUM
  3. CALCIUM [Concomitant]
     Active Substance: CALCIUM
  4. FISH OIL [Concomitant]
     Active Substance: FISH OIL
  5. OLANZEPINE [Suspect]
     Active Substance: OLANZAPINE
     Indication: BIPOLAR DISORDER
     Dosage: OLANZEPINE 2 TABLETS AT BEDTIME TAKEN BY MOUTH
     Route: 048
     Dates: start: 20160508, end: 20160518
  6. FLAXSEED [Concomitant]
     Active Substance: FLAX SEED
  7. MULTI VITAMIN [Concomitant]
     Active Substance: VITAMINS

REACTIONS (9)
  - Cough [None]
  - Feeling hot [None]
  - Peripheral swelling [None]
  - Oropharyngeal pain [None]
  - Back pain [None]
  - Parkinson^s disease [None]
  - Joint swelling [None]
  - Skin discolouration [None]
  - Gait disturbance [None]

NARRATIVE: CASE EVENT DATE: 20160508
